FAERS Safety Report 6927487-4 (Version None)
Quarter: 2010Q3

REPORT INFORMATION
  Report Type: 
  Country: None (occurrence: None)
  Receive Date: 20100817
  Receipt Date: 20100809
  Transmission Date: 20110219
  Serious: Yes (Other)
  Sender: FDA-Public Use
  Company Number: US-JNJFOC-20100708627

PATIENT
  Age: 27 Year
  Weight: 68.04 kg

DRUGS (10)
  1. GRIFULVIN V [Suspect]
     Indication: FUNGAL INFECTION
     Dosage: USED ON AND OFF FOR APPROXIMATELY 28 YEARS.
     Route: 061
  2. GRIFULVIN V [Suspect]
     Indication: RASH
     Dosage: USED ON AND OFF FOR APPROXIMATELY 28 YEARS.
     Route: 061
  3. GRIFULVIN V [Suspect]
     Dosage: USED ON AND OFF FOR APPROXIMATELY 28 YEARS.
     Route: 061
  4. GRIFULVIN V [Suspect]
     Dosage: USED ON AND OFF FOR APPROXIMATELY 28 YEARS.
     Route: 048
  5. GRIFULVIN V [Suspect]
     Dosage: USED ON AND OFF FOR APPROXIMATELY 28 YEARS.
     Route: 048
  6. GRIFULVIN V [Suspect]
     Dosage: USED ON AND OFF FOR APPROXIMATELY 28 YEARS.
     Route: 048
  7. BLOOD PRESSURE MEDICATION NOS [Concomitant]
     Indication: HYPERTENSION
     Route: 065
  8. MESALAMINE [Concomitant]
     Indication: PRODUCT USED FOR UNKNOWN INDICATION
     Route: 065
  9. VITAMIN TAB [Concomitant]
     Indication: PRODUCT USED FOR UNKNOWN INDICATION
     Route: 065
  10. UNKNOWN MEDICATION [Concomitant]
     Indication: PRODUCT USED FOR UNKNOWN INDICATION
     Route: 065

REACTIONS (3)
  - CROHN'S DISEASE [None]
  - INCORRECT ROUTE OF DRUG ADMINISTRATION [None]
  - MEDICATION ERROR [None]
